FAERS Safety Report 4948265-1 (Version None)
Quarter: 2006Q1

REPORT INFORMATION
  Report Type: 
  Country: None (occurrence: None)
  Receive Date: 20060127
  Receipt Date: 20050222
  Transmission Date: 20060701
  Serious: Yes (Other)
  Sender: FDA-Public Use
  Company Number: 05-02-0264

PATIENT
  Age: 38 Year
  Sex: Female
  Weight: 63.05 kg

DRUGS (4)
  1. CLOZAPINE [Suspect]
     Dosage: 550MG QD, ORAL
     Route: 048
     Dates: start: 20040901, end: 20050221
  2. RHINOCORT [Concomitant]
  3. ADVAIR DISKUS 100/50 [Concomitant]
  4. FLONASE [Concomitant]

REACTIONS (3)
  - DYSPHAGIA [None]
  - NEUTROPENIA [None]
  - WEIGHT DECREASED [None]
